FAERS Safety Report 6862055-4 (Version None)
Quarter: 2010Q3

REPORT INFORMATION
  Report Type: 
  Country: None (occurrence: None)
  Receive Date: 20100721
  Receipt Date: 20100709
  Transmission Date: 20110219
  Serious: Yes (Hospitalization)
  Sender: FDA-Public Use
  Company Number: FR-JNJFOC-20100703176

PATIENT
  Age: 37 Year
  Sex: Male

DRUGS (6)
  1. REMICADE [Suspect]
     Indication: ANKYLOSING SPONDYLITIS
     Dosage: 400 MG DAY 1, 15, AND 45 THEN EVERY 2 MONTHS
     Route: 042
  2. REMICADE [Suspect]
     Indication: CROHN'S DISEASE
     Dosage: 400 MG DAY 1, 15, AND 45 THEN EVERY 2 MONTHS
     Route: 042
  3. SALAZOPYRINE [Concomitant]
     Indication: CROHN'S DISEASE
     Route: 048
  4. SALAZOPYRINE [Concomitant]
     Route: 048
  5. SALAZOPYRINE [Concomitant]
     Indication: ANKYLOSING SPONDYLITIS
     Route: 048
  6. SALAZOPYRINE [Concomitant]
     Route: 048

REACTIONS (2)
  - SKIN INFECTION [None]
  - SPLENIC INFARCTION [None]
